FAERS Safety Report 6936554-0 (Version None)
Quarter: 2010Q3

REPORT INFORMATION
  Report Type: 
  Country: None (occurrence: None)
  Receive Date: 20100823
  Receipt Date: 20100729
  Transmission Date: 20110219
  Serious: No
  Sender: FDA-Public Use
  Company Number: US-PFIZER INC-2010087335

PATIENT
  Sex: Female
  Weight: 88 kg

DRUGS (1)
  1. LIPITOR [Suspect]
     Indication: HYPERCHOLESTEROLAEMIA
     Dosage: 40 MG, 1X/DAY, EVERY NIGHT
     Route: 048
     Dates: start: 20040309

REACTIONS (4)
  - ARTHRALGIA [None]
  - BODY HEIGHT DECREASED [None]
  - HEADACHE [None]
  - PAIN IN EXTREMITY [None]
